FAERS Safety Report 11490410 (Version 1)
Quarter: 2015Q3

REPORT INFORMATION
  Report Type: Spontaneous
  Country: US (occurrence: US)
  Receive Date: 20150910
  Receipt Date: 20150910
  Transmission Date: 20151125
  Serious: Yes (Other)
  Sender: FDA-Public Use
  Company Number: US-TEVA-589796USA

PATIENT
  Age: 53 Year
  Sex: Male

DRUGS (4)
  1. DULOXETINE. [Suspect]
     Active Substance: DULOXETINE
     Indication: INTERVERTEBRAL DISC DEGENERATION
     Dosage: 60 MILLIGRAM DAILY;
     Route: 048
     Dates: start: 2015, end: 201507
  2. DULOXETINE. [Suspect]
     Active Substance: DULOXETINE
     Indication: PAIN
     Dosage: 30 MILLIGRAM DAILY;
     Route: 048
     Dates: start: 2015, end: 201507
  3. ISENTRESS [Concomitant]
     Active Substance: RALTEGRAVIR POTASSIUM
  4. TRUVADA [Concomitant]
     Active Substance: EMTRICITABINE\TENOFOVIR DISOPROXIL FUMARATE

REACTIONS (7)
  - Suicidal ideation [Not Recovered/Not Resolved]
  - Crying [Not Recovered/Not Resolved]
  - Supraventricular tachycardia [Recovered/Resolved]
  - Presyncope [Recovered/Resolved]
  - Dizziness [Recovered/Resolved]
  - Depression [Not Recovered/Not Resolved]
  - Anxiety [Recovered/Resolved]

NARRATIVE: CASE EVENT DATE: 2015
